FAERS Safety Report 13615322 (Version 2)
Quarter: 2017Q3

REPORT INFORMATION
  Report Type: Spontaneous
  Country: US (occurrence: US)
  Receive Date: 20170606
  Receipt Date: 20170815
  Transmission Date: 20171127
  Serious: Yes (Death, Other)
  Sender: FDA-Public Use
  Company Number: US-GLAXOSMITHKLINE-US2017085050

PATIENT
  Sex: Female
  Weight: 96 kg

DRUGS (1)
  1. NUCALA [Suspect]
     Active Substance: MEPOLIZUMAB
     Indication: ASTHMA
     Dosage: 100 MG, U
     Route: 058
     Dates: start: 201703

REACTIONS (3)
  - Unresponsive to stimuli [Unknown]
  - Vomiting [Unknown]
  - Upper gastrointestinal haemorrhage [Fatal]
